FAERS Safety Report 23176340 (Version 1)
Quarter: 2023Q4

REPORT INFORMATION
  Report Type: Spontaneous
  Country: ES (occurrence: ES)
  Receive Date: 20231113
  Receipt Date: 20231113
  Transmission Date: 20240110
  Serious: Yes (Other)
  Sender: FDA-Public Use
  Company Number: ES-ASTELLAS-2023US033691

PATIENT
  Age: 77 Year
  Sex: Male

DRUGS (6)
  1. ENFORTUMAB VEDOTIN [Suspect]
     Active Substance: ENFORTUMAB VEDOTIN
     Indication: Transitional cell carcinoma
     Route: 065
  2. ENFORTUMAB VEDOTIN [Suspect]
     Active Substance: ENFORTUMAB VEDOTIN
     Indication: Metastases to lung
     Dosage: 1 MG/KG, CYCLIC (IN CYCLE 3 AFTER 1 WEEK DELAY) (AT 7 MONTHS)
     Route: 065
  3. ENFORTUMAB VEDOTIN [Suspect]
     Active Substance: ENFORTUMAB VEDOTIN
     Indication: Metastases to lymph nodes
     Dosage: 1.25 MG/KG, CYCLIC (REINTRODUCTION AT FULL DOSE)
     Route: 065
  4. AVELUMAB [Suspect]
     Active Substance: AVELUMAB
     Indication: Transitional cell carcinoma
     Dosage: UNK UNK, CYCLIC (STARTED IN MAINTENANCE THAT PROGRESSES AFTER 6 CYCLES (3 MONTHS))
     Route: 065
  5. AVELUMAB [Suspect]
     Active Substance: AVELUMAB
     Indication: Metastases to lung
  6. AVELUMAB [Suspect]
     Active Substance: AVELUMAB
     Indication: Metastases to lymph nodes

REACTIONS (5)
  - Malignant neoplasm progression [Unknown]
  - Skin toxicity [Unknown]
  - Pruritus [Unknown]
  - Fatigue [Unknown]
  - Neurotoxicity [Recovering/Resolving]
